FAERS Safety Report 6964058-8 (Version None)
Quarter: 2010Q3

REPORT INFORMATION
  Report Type: 
  Country: None (occurrence: None)
  Receive Date: 20100902
  Receipt Date: 20100902
  Transmission Date: 20110219
  Serious: No
  Sender: FDA-Public Use
  Company Number: None

PATIENT
  Sex: Female
  Weight: 68.0396 kg

DRUGS (1)
  1. ELMIRON [Suspect]
     Indication: CYSTITIS INTERSTITIAL
     Dosage: 2 CAP 2X PER DAY 2X PER DAY ORAL
     Route: 048
     Dates: start: 20091201

REACTIONS (4)
  - OBSTRUCTION [None]
  - OCULAR HYPERAEMIA [None]
  - PAIN [None]
  - VISUAL ACUITY REDUCED [None]
